FAERS Safety Report 7919666-4 (Version None)
Quarter: 2011Q4

REPORT INFORMATION
  Report Type: 
  Country: None (occurrence: None)
  Receive Date: 20111117
  Receipt Date: 20111107
  Transmission Date: 20120403
  Serious: Yes (Other)
  Sender: FDA-Public Use
  Company Number: NL-TEVA-291347ISR

PATIENT
  Sex: Female

DRUGS (2)
  1. DUTASTERIDE [Concomitant]
  2. COPAXONE [Suspect]
     Indication: MULTIPLE SCLEROSIS
     Dosage: 20 MILLIGRAM;
     Route: 058
     Dates: start: 20020425

REACTIONS (3)
  - AUTOIMMUNE DISORDER [None]
  - LUNG DISORDER [None]
  - ORGANISING PNEUMONIA [None]
